FAERS Safety Report 8347961-6 (Version None)
Quarter: 2012Q2

REPORT INFORMATION
  Report Type: 
  Country: None (occurrence: None)
  Receive Date: 20120509
  Receipt Date: 20120502
  Transmission Date: 20120825
  Serious: Yes (Hospitalization)
  Sender: FDA-Public Use
  Company Number: US-BAYER-2011-075087

PATIENT
  Age: 32 Year
  Sex: Female
  Weight: 65.76 kg

DRUGS (2)
  1. YAZ [Suspect]
     Dosage: UNK
     Route: 048
     Dates: start: 20010101, end: 20041201
  2. YAZ [Suspect]
     Dosage: UNK
     Dates: start: 20080601, end: 20081201

REACTIONS (4)
  - CHOLECYSTECTOMY [None]
  - BILIARY DYSKINESIA [None]
  - PAIN [None]
  - PANCREATITIS RELAPSING [None]
